FAERS Safety Report 20796916 (Version 1)
Quarter: 2022Q2

REPORT INFORMATION
  Report Type: Spontaneous
  Country: US (occurrence: US)
  Receive Date: 20220506
  Receipt Date: 20220506
  Transmission Date: 20220720
  Serious: No
  Sender: FDA-Public Use
  Company Number: US-PFIZER INC-202200255791

PATIENT
  Age: 8 Month
  Sex: Male

DRUGS (1)
  1. EUCRISA [Suspect]
     Active Substance: CRISABOROLE
     Indication: Eczema eyelids
     Dosage: UNK, 2X/DAY (APPLY THIN LAYER TWICE DAILY)

REACTIONS (1)
  - Condition aggravated [Not Recovered/Not Resolved]
